FAERS Safety Report 22089137 (Version 2)
Quarter: 2023Q2

REPORT INFORMATION
  Report Type: Spontaneous
  Country: DK (occurrence: DK)
  Receive Date: 20230313
  Receipt Date: 20230405
  Transmission Date: 20230721
  Serious: Yes (Hospitalization, Other)
  Sender: FDA-Public Use
  Company Number: None

PATIENT
  Age: 58 Year
  Sex: Male

DRUGS (6)
  1. MYCOPHENOLATE MOFETIL [Suspect]
     Active Substance: MYCOPHENOLATE MOFETIL
     Indication: Immunosuppressant drug therapy
     Dosage: UNK
     Route: 065
  2. TACROLIMUS [Suspect]
     Active Substance: TACROLIMUS
     Indication: Immunosuppressant drug therapy
     Dosage: UNK
     Route: 065
  3. PREDNISOLONE [Suspect]
     Active Substance: PREDNISOLONE
     Indication: Immunosuppressant drug therapy
     Dosage: 5 MILLIGRAM, QD
     Route: 048
  4. CLOBETASOL PROPIONATE [Suspect]
     Active Substance: CLOBETASOL PROPIONATE
     Indication: Neurodermatitis
     Dosage: UNK, QD, 3 HOUR OCCLUSIONAL TOPICAL STEROID
     Route: 065
  5. CLOBETASOL PROPIONATE [Suspect]
     Active Substance: CLOBETASOL PROPIONATE
     Dosage: 1 DOSAGE FORM, Q2D
     Route: 065
  6. CLOBETASOL PROPIONATE [Suspect]
     Active Substance: CLOBETASOL PROPIONATE
     Dosage: 1 DOSAGE FORM, QD
     Route: 065

REACTIONS (7)
  - Hyperglycaemic hyperosmolar nonketotic syndrome [Recovering/Resolving]
  - Diabetes mellitus [Recovering/Resolving]
  - Glucose tolerance impaired [Recovering/Resolving]
  - Product use in unapproved indication [Unknown]
  - Inappropriate schedule of product administration [Unknown]
  - Product use issue [Unknown]
  - Off label use [Unknown]
